APPROVED DRUG PRODUCT: REMIFENTANIL HYDROCHLORIDE
Active Ingredient: REMIFENTANIL HYDROCHLORIDE
Strength: EQ 1MG BASE/VIAL
Dosage Form/Route: INJECTABLE;INJECTION
Application: A210594 | Product #001 | TE Code: AP
Applicant: HIKMA PHARMACEUTICALS USA INC
Approved: Oct 13, 2020 | RLD: No | RS: No | Type: RX